FAERS Safety Report 10805868 (Version 1)
Quarter: 2015Q1

REPORT INFORMATION
  Report Type: Report from Study
  Country: US (occurrence: US)
  Receive Date: 20150217
  Receipt Date: 20150217
  Transmission Date: 20150721
  Serious: No
  Sender: FDA-Public Use
  Company Number: US-ABBVIE-14K-163-1249600-00

PATIENT
  Age: 45 Year
  Sex: Male

DRUGS (4)
  1. HUMIRA [Suspect]
     Active Substance: ADALIMUMAB
     Indication: PSORIASIS
     Dates: start: 20140524, end: 20140524
  2. HUMIRA [Suspect]
     Active Substance: ADALIMUMAB
     Dates: start: 20140531
  3. UNKNOWN OINTMENT [Concomitant]
     Active Substance: UNSPECIFIED INGREDIENT
     Indication: SKIN DISORDER
  4. UNKNOWN CHOLESTEROL MEDICATION [Concomitant]
     Active Substance: UNSPECIFIED INGREDIENT
     Indication: BLOOD CHOLESTEROL

REACTIONS (1)
  - Injection site pain [Recovered/Resolved]

NARRATIVE: CASE EVENT DATE: 20140531
